FAERS Safety Report 9682818 (Version 2)
Quarter: 2014Q1

REPORT INFORMATION
  Report Type: Report from Study
  Country: US (occurrence: US)
  Receive Date: 20131112
  Receipt Date: 20140106
  Transmission Date: 20141002
  Serious: Yes (Other)
  Sender: FDA-Public Use
  Company Number: PHEH2013US023406

PATIENT
  Age: 52 Year
  Sex: Female
  Weight: 62.2 kg

DRUGS (2)
  1. TOBI PODHALER [Suspect]
     Indication: CYSTIC FIBROSIS
     Dosage: 112 MG, BID
     Route: 055
  2. TOBI PODHALER [Suspect]
     Dosage: 4 DF, (4 CAPSULES)
     Dates: start: 20130724, end: 20130812

REACTIONS (6)
  - Respiratory tract irritation [Unknown]
  - Cough [Recovered/Resolved]
  - Drug hypersensitivity [Unknown]
  - Dyspnoea [Recovered/Resolved]
  - Tachycardia [Unknown]
  - Wheezing [Recovered/Resolved]
